FAERS Safety Report 8597268-7 (Version None)
Quarter: 2012Q3

REPORT INFORMATION
  Report Type: 
  Country: None (occurrence: None)
  Receive Date: 20120816
  Receipt Date: 20120809
  Transmission Date: 20120928
  Serious: No
  Sender: FDA-Public Use
  Company Number: US-BIOGENIDEC-2012BI030646

PATIENT
  Sex: Female

DRUGS (1)
  1. INTERFERON BETA-1A [Suspect]
     Indication: MULTIPLE SCLEROSIS
     Route: 030
     Dates: start: 20110912

REACTIONS (6)
  - INFLUENZA LIKE ILLNESS [None]
  - POLLAKIURIA [None]
  - HYPERHIDROSIS [None]
  - ADVERSE DRUG REACTION [None]
  - CHILLS [None]
  - FATIGUE [None]
